FAERS Safety Report 9328857 (Version 1)
Quarter: 2013Q2

REPORT INFORMATION
  Report Type: Spontaneous
  Country: US (occurrence: US)
  Receive Date: 20130604
  Receipt Date: 20130604
  Transmission Date: 20140414
  Serious: No
  Sender: FDA-Public Use
  Company Number: US-SANOFI-AVENTIS-2013SA038382

PATIENT
  Age: 81 Year
  Sex: Female

DRUGS (2)
  1. LANTUS [Suspect]
     Indication: TYPE 2 DIABETES MELLITUS
     Dosage: PRODUCT STARTED 1.5 YEARS DOSE:50 UNIT(S)
  2. HUMALOG [Concomitant]
     Dosage: TAKEN WITH HER MEALS DOSE:10 UNIT(S)

REACTIONS (5)
  - Tremor [Not Recovered/Not Resolved]
  - Tremor [Not Recovered/Not Resolved]
  - Blood glucose increased [Recovering/Resolving]
  - Blood glucose decreased [Recovered/Resolved]
  - Drug dose omission [Unknown]
